FAERS Safety Report 5052524-4 (Version None)
Quarter: 2006Q3

REPORT INFORMATION
  Report Type: 
  Country: None (occurrence: None)
  Receive Date: 20060717
  Receipt Date: 20060703
  Transmission Date: 20061208
  Serious: Yes (Death, Other)
  Sender: FDA-Public Use
  Company Number: PHBS2006US09902

PATIENT
  Age: 61 Year
  Sex: Male

DRUGS (9)
  1. CYCLOSPORINE [Suspect]
     Indication: STEM CELL TRANSPLANT
     Dosage: 3 MG/KG/D
     Route: 042
  2. PREDNISONE (NGX) [Suspect]
     Indication: STEM CELL TRANSPLANT
  3. METHOTREXATE [Suspect]
     Indication: STEM CELL TRANSPLANT
  4. MYCOPHENOLATE MOFETIL [Suspect]
     Indication: STEM CELL TRANSPLANT
  5. PUVA [Suspect]
     Indication: STEM CELL TRANSPLANT
  6. GLUCOCORTICOSTEROIDS [Concomitant]
     Route: 061
  7. CYCLOPHOSPHAMIDE [Concomitant]
     Dosage: 120 MG/KG/D
  8. FLUDARABINE [Concomitant]
     Dosage: 125 MG/M2
  9. CYCLOSPORINE [Suspect]
     Route: 048

REACTIONS (5)
  - CEREBROVASCULAR ACCIDENT [None]
  - GRAFT VERSUS HOST DISEASE [None]
  - OBLITERATIVE BRONCHIOLITIS [None]
  - SKIN NEOPLASM EXCISION [None]
  - SQUAMOUS CELL CARCINOMA OF SKIN [None]
